FAERS Safety Report 5887761-X (Version None)
Quarter: 2008Q3

REPORT INFORMATION
  Report Type: 
  Country: None (occurrence: None)
  Receive Date: 20080916
  Receipt Date: 20080905
  Transmission Date: 20090109
  Serious: Yes (Other)
  Sender: FDA-Public Use
  Company Number: 2008AP002299

PATIENT
  Sex: Female

DRUGS (2)
  1. PRAVASTATIN SODIUM [Suspect]
     Dosage: 20 MG;PO
     Route: 048
  2. ROSUVASTATIN [Concomitant]

REACTIONS (3)
  - ARTERIOSCLEROSIS CORONARY ARTERY [None]
  - BLOOD CHOLESTEROL INCREASED [None]
  - DRUG INEFFECTIVE [None]
